FAERS Safety Report 4577334-3 (Version None)
Quarter: 2005Q1

REPORT INFORMATION
  Report Type: 
  Country: None (occurrence: None)
  Receive Date: 20050210
  Receipt Date: 20050128
  Transmission Date: 20050727
  Serious: Yes (Hospitalization)
  Sender: FDA-Public Use
  Company Number: US-GLAXOSMITHKLINE-A0542891A

PATIENT
  Age: 79 Year
  Sex: Female
  Weight: 95.5 kg

DRUGS (7)
  1. TOPOTECAN [Suspect]
     Indication: OVARIAN CANCER
     Dosage: 1MGM2 CYCLIC
     Route: 042
     Dates: start: 20040303, end: 20040305
  2. TAXOL [Suspect]
     Indication: OVARIAN CANCER
     Dosage: 175MGM2 CYCLIC
     Route: 042
     Dates: start: 20040305, end: 20040305
  3. CARBOPLATIN [Suspect]
     Indication: OVARIAN CANCER
     Dosage: 5MGM2 CYCLIC
     Route: 042
     Dates: start: 20040305, end: 20040305
  4. ZOFRAN [Concomitant]
     Indication: PROPHYLAXIS
     Dosage: 8MG PER DAY
     Route: 042
     Dates: start: 20040303, end: 20040305
  5. DECADRON [Concomitant]
     Indication: PROPHYLAXIS
     Dosage: 20MG PER DAY
     Route: 042
     Dates: start: 20040303, end: 20040305
  6. BENADRYL [Concomitant]
     Indication: CHEMOTHERAPY
     Dosage: 50MG SINGLE DOSE
     Route: 042
     Dates: start: 20040305, end: 20040305
  7. CIMETIDINE [Concomitant]
     Indication: CHEMOTHERAPY
     Dosage: 300MG SINGLE DOSE
     Route: 042
     Dates: start: 20040305, end: 20040305

REACTIONS (4)
  - ADVERSE DRUG REACTION [None]
  - ATRIAL FIBRILLATION [None]
  - DYSPNOEA [None]
  - RASH [None]
